FAERS Safety Report 9969024 (Version 1)
Quarter: 2014Q1

REPORT INFORMATION
  Report Type: Report from Study
  Country: US (occurrence: US)
  Receive Date: 20140306
  Receipt Date: 20140306
  Transmission Date: 20141002
  Serious: No
  Sender: FDA-Public Use
  Company Number: US-ABBVIE-13P-163-1141938-00

PATIENT
  Age: 17 Year
  Sex: Female

DRUGS (10)
  1. HUMIRA [Suspect]
     Indication: JUVENILE IDIOPATHIC ARTHRITIS
     Dates: start: 20120502
  2. METHOTREXATE [Concomitant]
     Indication: JUVENILE IDIOPATHIC ARTHRITIS
  3. CELEXA [Concomitant]
     Indication: DEPRESSION
     Dosage: 30 MG DAILY
  4. OMEPRAZOLE [Concomitant]
     Indication: GASTROOESOPHAGEAL REFLUX DISEASE
     Dosage: 40 MG DAILY
  5. FOLIC ACID [Concomitant]
     Indication: STOMATITIS
     Dosage: 1 MG DAILY
  6. PROAIR [Concomitant]
     Indication: PROPHYLAXIS
  7. PROAIR [Concomitant]
     Indication: ASTHMA
  8. VOLTAREN [Concomitant]
     Indication: ARTHRALGIA
  9. METAXALONE [Concomitant]
     Indication: MUSCLE SPASMS
     Dates: end: 20130713
  10. NORFLEX [Concomitant]
     Indication: MUSCLE SPASMS

REACTIONS (2)
  - Injection site swelling [Recovering/Resolving]
  - Injection site pain [Recovering/Resolving]
